FAERS Safety Report 8925338 (Version 2)
Quarter: 2014Q2

REPORT INFORMATION
  Report Type: Spontaneous
  Country: FR (occurrence: FR)
  Receive Date: 20121126
  Receipt Date: 20131018
  Transmission Date: 20141212
  Serious: Yes (Hospitalization)
  Sender: FDA-Public Use
  Company Number: FR-PFIZER INC-2012289183

PATIENT
  Age: 39 Year
  Sex: Female

DRUGS (2)
  1. ARACYTINE [Suspect]
     Indication: ACUTE MYELOID LEUKAEMIA
     Dosage: UNK
     Route: 042
     Dates: start: 200901, end: 200901
  2. MITOXANTRONE HYDROCHLORIDE [Suspect]
     Indication: ACUTE MYELOID LEUKAEMIA
     Dosage: UNK
     Route: 042
     Dates: start: 200901, end: 200901

REACTIONS (1)
  - Pyelonephritis [Recovered/Resolved]
